FAERS Safety Report 22647341 (Version 1)
Quarter: 2023Q2

REPORT INFORMATION
  Report Type: Spontaneous
  Country: CN (occurrence: CN)
  Receive Date: 20230627
  Receipt Date: 20230627
  Transmission Date: 20230722
  Serious: Yes (Hospitalization)
  Sender: FDA-Public Use
  Company Number: CN-ABBVIE-5305061

PATIENT
  Age: 3 Year
  Sex: Male
  Weight: 14 kg

DRUGS (10)
  1. VENETOCLAX [Suspect]
     Active Substance: VENETOCLAX
     Indication: Chemotherapy
     Dosage: 50 MILLIGRAM
     Route: 048
     Dates: start: 20230601, end: 20230621
  2. DEXAMETHASONE SODIUM PHOSPHATE [Concomitant]
     Active Substance: DEXAMETHASONE SODIUM PHOSPHATE
     Indication: Antiallergic therapy
     Dosage: 1 MILLIGRAM
     Route: 037
     Dates: start: 20230601, end: 20230601
  3. METHOTREXATE [Suspect]
     Active Substance: METHOTREXATE
     Indication: Chemotherapy
     Dosage: 0.0125 GRAM
     Route: 037
     Dates: start: 20230601, end: 20230601
  4. DEXRAZOXANE [Suspect]
     Active Substance: DEXRAZOXANE
     Indication: Chemotherapy
     Dosage: 250 MILLIGRAM
     Route: 041
     Dates: start: 20230601, end: 20230603
  5. IDARUBICIN HYDROCHLORIDE [Suspect]
     Active Substance: IDARUBICIN HYDROCHLORIDE
     Indication: Chemotherapy
     Dosage: 5 MILLIGRAM
     Route: 041
     Dates: start: 20230601, end: 20230603
  6. DEXTROSE [Concomitant]
     Active Substance: DEXTROSE\DEXTROSE MONOHYDRATE
     Indication: Product used for unknown indication
     Dosage: 100 MILLILITER
     Route: 041
     Dates: start: 20230601, end: 20230603
  7. DEXTROSE [Concomitant]
     Active Substance: DEXTROSE\DEXTROSE MONOHYDRATE
     Indication: Product used for unknown indication
     Dosage: 50 MILLILITER
     Route: 041
     Dates: start: 20230601, end: 20230603
  8. CYTARABINE [Suspect]
     Active Substance: CYTARABINE
     Indication: Chemotherapy
     Dosage: 0.03 GRAM
     Route: 037
     Dates: start: 20230601, end: 20230601
  9. IMIPENEM AND CILASTATIN [Concomitant]
     Active Substance: CILASTATIN SODIUM\IMIPENEM
     Indication: Infection
     Dosage: TIME INTERVAL: 0.33333333 DAYS: 1.5 GRAM
     Route: 041
     Dates: start: 20230611, end: 20230620
  10. TROPISETRON HYDROCHLORIDE [Concomitant]
     Active Substance: TROPISETRON HYDROCHLORIDE
     Indication: Vomiting
     Dosage: 15 MILLIGRAM
     Route: 041
     Dates: start: 20230601, end: 20230603

REACTIONS (3)
  - Granulocytopenia [Recovering/Resolving]
  - Erythropenia [Recovering/Resolving]
  - Thrombocytopenia [Recovering/Resolving]

NARRATIVE: CASE EVENT DATE: 20230621
